FAERS Safety Report 24021126 (Version 1)
Quarter: 2024Q2

REPORT INFORMATION
  Report Type: Spontaneous
  Country: DE (occurrence: DE)
  Receive Date: 20240627
  Receipt Date: 20240627
  Transmission Date: 20240716
  Serious: Yes (Other)
  Sender: FDA-Public Use
  Company Number: DE-BRISTOL-MYERS SQUIBB COMPANY-2024-100886

PATIENT
  Age: 52 Year
  Sex: Female

DRUGS (2)
  1. NIVOLUMAB [Suspect]
     Active Substance: NIVOLUMAB
     Indication: Malignant melanoma
     Dates: start: 201801
  2. IPILIMUMAB [Suspect]
     Active Substance: IPILIMUMAB
     Indication: Malignant melanoma

REACTIONS (12)
  - Dyspnoea [Unknown]
  - Headache [Unknown]
  - Dizziness [Unknown]
  - Hypophysitis [Unknown]
  - Atelectasis [Unknown]
  - Pleural effusion [Unknown]
  - Sepsis [Unknown]
  - Hypotension [Unknown]
  - Influenza [Unknown]
  - Acute myocardial infarction [Unknown]
  - Metastases to lymph nodes [Unknown]
  - Malignant neoplasm progression [Unknown]
